FAERS Safety Report 6925494-9 (Version None)
Quarter: 2010Q3

REPORT INFORMATION
  Report Type: 
  Country: None (occurrence: None)
  Receive Date: 20100816
  Receipt Date: 20100808
  Transmission Date: 20110219
  Serious: Yes (Other)
  Sender: FDA-Public Use
  Company Number: NL-TEVA-244597ISR

PATIENT
  Sex: Female

DRUGS (1)
  1. CIPROFLOXACIN [Suspect]
     Indication: DIARRHOEA INFECTIOUS
     Route: 048

REACTIONS (3)
  - BURNING SENSATION [None]
  - PYREXIA [None]
  - RENAL DISORDER [None]
